FAERS Safety Report 5949757-9 (Version None)
Quarter: 2008Q4

REPORT INFORMATION
  Report Type: 
  Country: None (occurrence: None)
  Receive Date: 20081112
  Receipt Date: 20081101
  Transmission Date: 20090506
  Serious: Yes (Hospitalization)
  Sender: FDA-Public Use
  Company Number: US-BAYER-200837502NA

PATIENT

DRUGS (3)
  1. CAMPATH [Suspect]
     Indication: MULTIPLE SCLEROSIS
  2. CAMPATH [Suspect]
  3. HYDROXYZINE [Concomitant]

REACTIONS (1)
  - ANGIOEDEMA [None]
